FAERS Safety Report 9201526 (Version 1)
Quarter: 2013Q2

REPORT INFORMATION
  Report Type: Spontaneous
  Country: US (occurrence: US)
  Receive Date: 20130401
  Receipt Date: 20130401
  Transmission Date: 20140414
  Serious: Yes (Other)
  Sender: FDA-Public Use
  Company Number: US-ASTRAZENECA-2013SE19393

PATIENT
  Age: 75 Year
  Sex: Female

DRUGS (2)
  1. BRILINTA [Suspect]
     Dosage: LOADING DOSE
     Route: 048
     Dates: start: 20130321
  2. ANGIOMAX [Suspect]

REACTIONS (1)
  - Haemoptysis [Unknown]
